FAERS Safety Report 9981318 (Version 1)
Quarter: 2014Q1

REPORT INFORMATION
  Report Type: Spontaneous
  Country: US (occurrence: None)
  Receive Date: 20140305
  Receipt Date: 20140305
  Transmission Date: 20141002
  Serious: Yes (Hospitalization, Other)
  Sender: FDA-Public Use
  Company Number: 2014SGN00142

PATIENT
  Sex: 0

DRUGS (1)
  1. ADCETRIS [Suspect]
     Indication: HODGKIN^S DISEASE

REACTIONS (7)
  - Blood bilirubin increased [None]
  - Blood alkaline phosphatase increased [None]
  - Aspartate aminotransferase increased [None]
  - Alanine aminotransferase increased [None]
  - Febrile neutropenia [None]
  - Jaundice [None]
  - Abdominal pain [None]
